FAERS Safety Report 24371916 (Version 1)
Quarter: 2024Q3

REPORT INFORMATION
  Report Type: Spontaneous
  Country: IN (occurrence: IN)
  Receive Date: 20240927
  Receipt Date: 20240927
  Transmission Date: 20241016
  Serious: Yes (Other)
  Sender: VERITY PHARMACEUTICALS
  Company Number: IN-VER-202400001

PATIENT
  Age: 58 Year
  Sex: Male

DRUGS (1)
  1. BCG VACCINE [Suspect]
     Active Substance: BCG VACCINE
     Indication: Transitional cell carcinoma
     Route: 042

REACTIONS (2)
  - Disseminated Bacillus Calmette-Guerin infection [Unknown]
  - Off label use [Unknown]
